FAERS Safety Report 14553019 (Version 2)
Quarter: 2018Q2

REPORT INFORMATION
  Report Type: Spontaneous
  Country: US (occurrence: US)
  Receive Date: 20180220
  Receipt Date: 20180530
  Transmission Date: 20180711
  Serious: No
  Sender: FDA-Public Use
  Company Number: US-LEXICON PHARMACEUTICALS, INC-18-1606-00079

PATIENT
  Sex: Male

DRUGS (19)
  1. BELLADONNA-OPIUM [Concomitant]
  2. FIBER [Concomitant]
     Active Substance: PSYLLIUM HUSK
  3. SIMETHICONE (DIMETHICONE) [Concomitant]
     Active Substance: DIMETHICONE
  4. ROXICODONE [Concomitant]
     Active Substance: OXYCODONE HYDROCHLORIDE
  5. MEGACE ORAL SUS [Concomitant]
  6. SANDOSTATIN [Concomitant]
     Active Substance: OCTREOTIDE ACETATE
     Dates: start: 20170203
  7. EVERLOMIUS [Concomitant]
     Dates: start: 20171022
  8. QUESTRAN [Concomitant]
     Active Substance: CHOLESTYRAMINE
  9. TYLENOL [Concomitant]
     Active Substance: ACETAMINOPHEN
  10. MULTIVITAMIN [Concomitant]
     Active Substance: VITAMINS
  11. CREON [Concomitant]
     Active Substance: PANCRELIPASE AMYLASE\PANCRELIPASE LIPASE\PANCRELIPASE PROTEASE
  12. ZOFRAN [Concomitant]
     Active Substance: ONDANSETRON HYDROCHLORIDE
  13. K-PHOS [Concomitant]
     Active Substance: POTASSIUM PHOSPHATE, MONOBASIC
  14. DIPHENOXYLATE-ATROPINE [Concomitant]
     Active Substance: ATROPINE\DIPHENOXYLATE
  15. LOPERAMIDE [Concomitant]
     Active Substance: LOPERAMIDE
  16. METAMUCIL [Concomitant]
     Active Substance: PLANTAGO SEED
  17. OMEGA3 [Concomitant]
  18. TELOTRISTAT ETHYL [Suspect]
     Active Substance: TELOTRISTAT ETHYL
     Indication: CARCINOID TUMOUR
     Route: 048
     Dates: start: 20170422
  19. MELATONIN [Concomitant]
     Active Substance: MELATONIN

REACTIONS (3)
  - Arthralgia [Not Recovered/Not Resolved]
  - Joint swelling [Not Recovered/Not Resolved]
  - Nasopharyngitis [Not Recovered/Not Resolved]
